FAERS Safety Report 5578511-5 (Version None)
Quarter: 2007Q4

REPORT INFORMATION
  Report Type: 
  Country: None (occurrence: None)
  Receive Date: 20071227
  Receipt Date: 19821215
  Transmission Date: 20080405
  Serious: Yes (Other)
  Sender: FDA-Public Use
  Company Number: 2006VX001667

PATIENT
  Age: 59 Year
  Sex: Male

DRUGS (5)
  1. CESAMET [Suspect]
     Indication: APNOEA
     Dosage: 3.00 MG;QD;PO
     Route: 048
  2. MAXERAN (METOCLOPRAMIDE HYDROCHLORIDE) [Suspect]
     Dosage: 40 MG; PO, 60 MG; PO
     Route: 048
  3. MAXERAN (METOCLOPRAMIDE HYDROCHLORIDE) [Suspect]
     Dosage: 40 MG; PO, 60 MG; PO
     Route: 048
  4. SERAX [Concomitant]
  5. PEPTOL [Concomitant]

REACTIONS (3)
  - APNOEA [None]
  - DIZZINESS [None]
  - SYNCOPE [None]
